FAERS Safety Report 9490962 (Version 3)
Quarter: 2014Q3

REPORT INFORMATION
  Report Type: Spontaneous
  Country: US (occurrence: US)
  Receive Date: 20130830
  Receipt Date: 20140710
  Transmission Date: 20150326
  Serious: Yes (Hospitalization)
  Sender: FDA-Public Use
  Company Number: US-BAYER-2013-104466

PATIENT
  Age: 26 Year
  Sex: Female
  Weight: 70.3 kg

DRUGS (4)
  1. NUVARING [Concomitant]
     Active Substance: ETHINYL ESTRADIOL\ETONOGESTREL
  2. MOTRIN [Concomitant]
     Active Substance: IBUPROFEN
  3. MIRENA [Suspect]
     Active Substance: LEVONORGESTREL
     Indication: CONTRACEPTION
     Dosage: 20 MCG/24HR, CONT
     Route: 015
     Dates: start: 20051025, end: 20110727
  4. IBUPROFEN. [Concomitant]
     Active Substance: IBUPROFEN

REACTIONS (9)
  - Injury [None]
  - Uterine perforation [None]
  - Device misuse [None]
  - Infection [None]
  - Abdominal pain [None]
  - Medical device pain [None]
  - Bladder injury [None]
  - Device issue [None]
  - Pelvic pain [None]

NARRATIVE: CASE EVENT DATE: 2007
